FAERS Safety Report 10488767 (Version 1)
Quarter: 2014Q4

REPORT INFORMATION
  Report Type: Spontaneous
  Country: US (occurrence: None)
  Receive Date: 20141001
  Receipt Date: 20141001
  Transmission Date: 20150528
  Serious: Yes (Hospitalization)
  Sender: FDA-Public Use
  Company Number: None

PATIENT
  Age: 62 Year
  Sex: Male
  Weight: 106.2 kg

DRUGS (1)
  1. NAPROXEN. [Suspect]
     Active Substance: NAPROXEN
     Route: 048
     Dates: start: 20140627, end: 20140627

REACTIONS (6)
  - Throat irritation [None]
  - Rash [None]
  - Pruritus [None]
  - Urticaria [None]
  - Tongue pruritus [None]
  - Anaphylactic reaction [None]

NARRATIVE: CASE EVENT DATE: 20140627
